FAERS Safety Report 7478528-X (Version None)
Quarter: 2011Q2

REPORT INFORMATION
  Report Type: 
  Country: None (occurrence: None)
  Receive Date: 20110513
  Receipt Date: 20110512
  Transmission Date: 20111010
  Serious: No
  Sender: FDA-Public Use
  Company Number: US-TEVA-280833USA

PATIENT
  Sex: Female
  Weight: 49.94 kg

DRUGS (2)
  1. ZARAH [Concomitant]
     Indication: CONTRACEPTION
     Dates: start: 20090101
  2. PLAN B ONE-STEP [Suspect]
     Indication: POST COITAL CONTRACEPTION
     Dosage: 1.5 MILLIGRAM;
     Route: 048
     Dates: start: 20110410, end: 20110410

REACTIONS (1)
  - MENSTRUATION DELAYED [None]
